FAERS Safety Report 17771537 (Version 1)
Quarter: 2020Q2

REPORT INFORMATION
  Report Type: Report from Study
  Country: None (occurrence: US)
  Receive Date: 20200512
  Receipt Date: 20200512
  Transmission Date: 20200714
  Serious: Yes (Hospitalization, Other)
  Sender: FDA-Public Use
  Company Number: US-ABBVIE-20K-163-3392431-00

PATIENT
  Age: 14 Year
  Sex: Female
  Weight: 88.53 kg

DRUGS (9)
  1. OXYCODONE [Concomitant]
     Active Substance: OXYCODONE
     Indication: PRODUCT USED FOR UNKNOWN INDICATION
     Dates: end: 2020
  2. IRON [Concomitant]
     Active Substance: IRON
     Indication: RENAL DISORDER
  3. ZEMPLAR [Concomitant]
     Active Substance: PARICALCITOL
     Indication: PRODUCT USED FOR UNKNOWN INDICATION
  4. TYLENOL [Concomitant]
     Active Substance: ACETAMINOPHEN
     Indication: PRODUCT USED FOR UNKNOWN INDICATION
  5. HUMIRA [Suspect]
     Active Substance: ADALIMUMAB
     Indication: CROHN^S DISEASE
     Route: 058
     Dates: start: 201805
  6. RENAGEL [Concomitant]
     Active Substance: SEVELAMER HYDROCHLORIDE
     Indication: RENAL DISORDER
  7. METOPROLOL. [Concomitant]
     Active Substance: METOPROLOL
     Indication: HYPERTENSION
  8. COLACE [Concomitant]
     Active Substance: DOCUSATE SODIUM
     Indication: CONSTIPATION PROPHYLAXIS
  9. POTASSIUM [Concomitant]
     Active Substance: POTASSIUM
     Indication: PRODUCT USED FOR UNKNOWN INDICATION
     Dosage: POTASSIUM SHOT TO 7

REACTIONS (13)
  - Nephrectomy [Recovering/Resolving]
  - Endoscopy [Recovered/Resolved]
  - General physical health deterioration [Unknown]
  - Laboratory test abnormal [Recovering/Resolving]
  - Dialysis related complication [Not Recovered/Not Resolved]
  - Metabolic disorder [Recovering/Resolving]
  - Colonoscopy [Recovered/Resolved]
  - Intensive care [Recovered/Resolved]
  - Dialysis [Not Recovered/Not Resolved]
  - Haemodialysis [Recovering/Resolving]
  - Focal segmental glomerulosclerosis [Recovering/Resolving]
  - Renal impairment [Not Recovered/Not Resolved]
  - Asthenia [Not Recovered/Not Resolved]

NARRATIVE: CASE EVENT DATE: 20200301
